FAERS Safety Report 8378185-4 (Version None)
Quarter: 2012Q2

REPORT INFORMATION
  Report Type: 
  Country: None (occurrence: None)
  Receive Date: 20120522
  Receipt Date: 20120516
  Transmission Date: 20120825
  Serious: No
  Sender: FDA-Public Use
  Company Number: US-PFIZER INC-2012119954

PATIENT
  Sex: Male

DRUGS (2)
  1. CODEINE SULFATE [Suspect]
     Dosage: UNK
  2. SINEQUAN [Suspect]
     Dosage: UNK

REACTIONS (1)
  - DERMATITIS ALLERGIC [None]
